FAERS Safety Report 5874973-4 (Version None)
Quarter: 2008Q3

REPORT INFORMATION
  Report Type: 
  Country: None (occurrence: None)
  Receive Date: 20080908
  Receipt Date: 20080908
  Transmission Date: 20090109
  Serious: Yes (Hospitalization, Other)
  Sender: FDA-Public Use
  Company Number: None

PATIENT
  Age: 58 Year
  Sex: Female
  Weight: 66.2252 kg

DRUGS (1)
  1. MITOMYCIN [Suspect]
     Indication: PROPHYLACTIC CHEMOTHERAPY
     Dosage: 1 TIME
     Dates: start: 20080326, end: 20080326

REACTIONS (6)
  - BLADDER DISORDER [None]
  - BLADDER INJURY [None]
  - BLOOD URINE PRESENT [None]
  - CYSTITIS [None]
  - DYSURIA [None]
  - MICTURITION URGENCY [None]
